FAERS Safety Report 9714383 (Version 1)
Quarter: 2013Q4

REPORT INFORMATION
  Report Type: Spontaneous
  Country: FR (occurrence: FR)
  Receive Date: 20131126
  Receipt Date: 20131126
  Transmission Date: 20140711
  Serious: Yes (Life-Threatening, Hospitalization)
  Sender: FDA-Public Use
  Company Number: FR-BRISTOL-MYERS SQUIBB COMPANY-19819978

PATIENT
  Age: 43 Year
  Sex: Male

DRUGS (9)
  1. SKENAN PROL RELEASE GRAN CAPS 60 MG [Suspect]
     Dates: end: 20130920
  2. CETUXIMAB [Suspect]
     Indication: SQUAMOUS CELL CARCINOMA
     Dates: start: 20130917, end: 20130924
  3. POLARAMINE [Suspect]
     Dates: start: 20130917, end: 20130924
  4. SOLU-MEDROL [Suspect]
     Dates: start: 20130917, end: 20130924
  5. XYLOCAINE [Suspect]
     Dates: start: 20130917, end: 20130924
  6. LAROXYL [Suspect]
     Dates: start: 20130917, end: 20130924
  7. EFFEXOR [Suspect]
     Dates: start: 20130917, end: 20130924
  8. ORAMORPH [Suspect]
     Dates: end: 20130920
  9. KETAMINE [Suspect]
     Dates: end: 20130920

REACTIONS (3)
  - Dyspnoea [Recovered/Resolved]
  - Lung disorder [Recovered/Resolved]
  - Pyrexia [Recovered/Resolved]
